FAERS Safety Report 23622258 (Version 1)
Quarter: 2024Q1

REPORT INFORMATION
  Report Type: Spontaneous
  Country: TH (occurrence: TH)
  Receive Date: 20240312
  Receipt Date: 20240312
  Transmission Date: 20240410
  Serious: Yes (Life-Threatening, Other)
  Sender: FDA-Public Use
  Company Number: TH-GE HEALTHCARE-2024CSU002254

PATIENT
  Age: 73 Year
  Sex: Female
  Weight: 87 kg

DRUGS (1)
  1. CLARISCAN [Suspect]
     Active Substance: GADOTERATE MEGLUMINE
     Indication: Diagnostic procedure
     Dosage: 15 ML, TOTAL
     Route: 042
     Dates: start: 20240304, end: 20240304

REACTIONS (7)
  - Oxygen saturation decreased [Recovering/Resolving]
  - Confusional state [Recovering/Resolving]
  - Tongue discomfort [Recovering/Resolving]
  - Drooling [Recovering/Resolving]
  - Chest discomfort [Recovering/Resolving]
  - Cough [Recovering/Resolving]
  - Nausea [Recovering/Resolving]

NARRATIVE: CASE EVENT DATE: 20240304
